FAERS Safety Report 8827811 (Version 1)
Quarter: 2012Q4

REPORT INFORMATION
  Report Type: 
  Country: US (occurrence: US)
  Receive Date: 20121008
  Receipt Date: 20121008
  Transmission Date: 20130627
  Serious: No
  Sender: FDA-Public Use
  Company Number: US-PFIZER INC-2012247702

PATIENT
  Age: 39 Year
  Sex: Female
  Weight: 90.7 kg

DRUGS (3)
  1. CHANTIX [Suspect]
     Indication: SMOKING CESSATION THERAPY
     Dosage: 0.5 mg, 1x/day
     Route: 048
     Dates: start: 200804
  2. CHANTIX [Suspect]
     Dosage: UNK
     Route: 048
     Dates: start: 201206, end: 2012
  3. CHANTIX [Suspect]
     Dosage: 0.5 mg, 1x/day
     Route: 048
     Dates: start: 20121004

REACTIONS (2)
  - Drug ineffective [Unknown]
  - Nausea [Not Recovered/Not Resolved]
